FAERS Safety Report 6019452-9 (Version None)
Quarter: 2008Q4

REPORT INFORMATION
  Report Type: 
  Country: None (occurrence: None)
  Receive Date: 20081224
  Receipt Date: 20081218
  Transmission Date: 20090506
  Serious: Yes (Other)
  Sender: FDA-Public Use
  Company Number: US-ELI_LILLY_AND_COMPANY-US200812005339

PATIENT
  Age: 78 Year
  Sex: Female

DRUGS (1)
  1. HUMALOG [Suspect]

REACTIONS (4)
  - BLOOD GLUCOSE FLUCTUATION [None]
  - HYPOACUSIS [None]
  - INFLUENZA [None]
  - PNEUMONIA [None]
